FAERS Safety Report 20383114 (Version 1)
Quarter: 2022Q1

REPORT INFORMATION
  Report Type: Spontaneous
  Country: US (occurrence: None)
  Receive Date: 20220126
  Receipt Date: 20220126
  Transmission Date: 20220423
  Serious: No
  Sender: FDA-Public Use
  Company Number: None

PATIENT

DRUGS (1)
  1. STERILE WATER FOR INJECTION [Suspect]
     Active Substance: WATER

REACTIONS (4)
  - Wrong technique in product usage process [None]
  - Product preparation issue [None]
  - Product selection error [None]
  - Product administration error [None]
